FAERS Safety Report 6239501-2 (Version None)
Quarter: 2009Q2

REPORT INFORMATION
  Report Type: 
  Country: None (occurrence: None)
  Receive Date: 20090622
  Receipt Date: 20090617
  Transmission Date: 20091009
  Serious: Yes (Death, Other)
  Sender: FDA-Public Use
  Company Number: US-CELGENEUS-163-21880-09051829

PATIENT
  Sex: Female

DRUGS (2)
  1. REVLIMID [Suspect]
     Indication: MULTIPLE MYELOMA
     Route: 048
     Dates: start: 20090423, end: 20090507
  2. REVLIMID [Suspect]
     Dosage: 10-25 MG
     Route: 048
     Dates: start: 20070401, end: 20080301

REACTIONS (2)
  - MULTIPLE MYELOMA [None]
  - RENAL FAILURE ACUTE [None]
